FAERS Safety Report 7752632-0 (Version None)
Quarter: 2011Q3

REPORT INFORMATION
  Report Type: 
  Country: None (occurrence: None)
  Receive Date: 20110915
  Receipt Date: 20110906
  Transmission Date: 20111222
  Serious: Yes (Hospitalization)
  Sender: FDA-Public Use
  Company Number: FR-ROCHE-662897

PATIENT
  Sex: Male

DRUGS (12)
  1. OROCAL D3 [Concomitant]
     Dosage: DRUG: OROCAL VIT D3
     Dates: start: 20081001
  2. LASIX [Concomitant]
     Dates: start: 20081001
  3. ZOCOR [Concomitant]
     Dates: start: 20081001
  4. FELODIPINE [Concomitant]
     Dates: start: 20081001
  5. ASPIRIN [Concomitant]
     Dates: start: 20081001
  6. PANTOPRAZOLE SODIUM [Concomitant]
     Dates: start: 20081001
  7. RENAGEL [Concomitant]
     Dates: start: 20081001
  8. APROVEL [Concomitant]
     Dates: start: 20081001
  9. FORLAX [Concomitant]
     Dates: start: 20081001
  10. SOTALOL HCL [Concomitant]
     Dates: start: 20081001
  11. FERROUS SULFATE TAB [Concomitant]
     Dates: start: 20081001
  12. METHOXY POLYETHYLENE GLYCOL-EPOETIN BETA [Suspect]
     Dosage: FORM: PRE-FILLED SYRINGE; LAST DOSE PRIOR TO SAE: 23 MARCH 2009.
     Route: 058
     Dates: start: 20090224

REACTIONS (1)
  - LUNG DISORDER [None]
